FAERS Safety Report 5531212-1 (Version None)
Quarter: 2007Q4

REPORT INFORMATION
  Report Type: 
  Country: None (occurrence: None)
  Receive Date: 20071130
  Receipt Date: 20071127
  Transmission Date: 20080405
  Serious: Yes (Death)
  Sender: FDA-Public Use
  Company Number: US-MERCK-0711USA03104

PATIENT
  Age: 56 Year
  Sex: Male
  Weight: 76 kg

DRUGS (11)
  1. ZOLINZA [Suspect]
     Indication: MYCOSIS FUNGOIDES
     Route: 048
     Dates: start: 20070701, end: 20070801
  2. GEMCITABINE HYDROCHLORIDE [Concomitant]
     Route: 041
     Dates: start: 20070917
  3. ADENOSINE [Concomitant]
     Route: 041
     Dates: start: 20070904
  4. FUROSEMIDE [Concomitant]
     Route: 048
     Dates: start: 20070831
  5. FOLIC ACID [Concomitant]
     Route: 048
     Dates: start: 20070827
  6. VORICONAZOLE [Concomitant]
     Route: 048
     Dates: start: 20070815
  7. FLEBOGAMMA [Concomitant]
     Route: 041
     Dates: start: 20070803
  8. ACETAMINOPHEN [Concomitant]
     Route: 048
     Dates: start: 20070803
  9. DIPHENHYDRAMINE HYDROCHLORIDE [Concomitant]
     Route: 041
     Dates: start: 20070803
  10. FOLIC ACID [Concomitant]
     Route: 048
     Dates: start: 20070727
  11. VORICONAZOLE [Concomitant]
     Route: 048
     Dates: start: 20070713

REACTIONS (2)
  - CARDIO-RESPIRATORY ARREST [None]
  - DRUG LEVEL INCREASED [None]
